FAERS Safety Report 9671030 (Version 2)
Quarter: 2013Q4

REPORT INFORMATION
  Report Type: Report from Study
  Country: BR (occurrence: BR)
  Receive Date: 20131106
  Receipt Date: 20131106
  Transmission Date: 20140711
  Serious: Yes (Other)
  Sender: FDA-Public Use
  Company Number: BR-ABBVIE-13P-020-1163086-00

PATIENT
  Sex: Female
  Weight: 58 kg

DRUGS (3)
  1. HUMIRA [Suspect]
     Indication: RHEUMATOID ARTHRITIS
     Route: 058
     Dates: start: 20130601
  2. CLOPIDOGREL [Concomitant]
     Indication: BLOOD DISORDER
     Route: 048
  3. CORTICORTEN [Concomitant]
     Indication: ARTHRITIS
     Route: 048

REACTIONS (2)
  - Cataract [Recovering/Resolving]
  - Vision blurred [Unknown]
